FAERS Safety Report 23114826 (Version 1)
Quarter: 2023Q4

REPORT INFORMATION
  Report Type: Spontaneous
  Country: US (occurrence: US)
  Receive Date: 20231027
  Receipt Date: 20231027
  Transmission Date: 20240110
  Serious: No
  Sender: FDA-Public Use
  Company Number: US-ELI_LILLY_AND_COMPANY-US202310011752

PATIENT
  Age: 59 Year
  Sex: Male

DRUGS (2)
  1. TALTZ [Suspect]
     Active Substance: IXEKIZUMAB
     Indication: Psoriatic arthropathy
     Dosage: 160 MG, OTHER(LOADING DOSE)
     Route: 065
     Dates: start: 20231012
  2. TESTOSTERONE [Concomitant]
     Active Substance: TESTOSTERONE
     Indication: Product used for unknown indication
     Dosage: UNK, WEEKLY (1/W)
     Route: 065

REACTIONS (5)
  - Fatigue [Unknown]
  - Nasal congestion [Unknown]
  - Pain [Unknown]
  - Exposure to SARS-CoV-2 [Unknown]
  - Nausea [Unknown]

NARRATIVE: CASE EVENT DATE: 20231001
